FAERS Safety Report 6600353-X (Version None)
Quarter: 2010Q1

REPORT INFORMATION
  Report Type: 
  Country: None (occurrence: None)
  Receive Date: 20100224
  Receipt Date: 20100222
  Transmission Date: 20100710
  Serious: Yes (Hospitalization)
  Sender: FDA-Public Use
  Company Number: US-GILEAD-2010-0026957

PATIENT
  Sex: Female
  Weight: 62.652 kg

DRUGS (15)
  1. LETAIRIS [Suspect]
     Indication: PULMONARY ARTERIAL HYPERTENSION
     Route: 048
     Dates: start: 20040719
  2. TRICOR [Concomitant]
  3. FUROSEMIDE [Concomitant]
  4. BENAZEPRIL HYDROCHLORIDE [Concomitant]
  5. VIREAD [Concomitant]
  6. NORVIR [Concomitant]
  7. REYATAZ [Concomitant]
  8. EPZICOM [Concomitant]
  9. PREDNISONE TAB [Concomitant]
  10. ACTOS [Concomitant]
  11. METFORMIN [Concomitant]
  12. BENADRYL [Concomitant]
  13. PEPCID [Concomitant]
  14. KLOR-CON [Concomitant]
  15. MULTI-VITAMINS [Concomitant]

REACTIONS (1)
  - BACK PAIN [None]
